FAERS Safety Report 6187894-7 (Version None)
Quarter: 2009Q2

REPORT INFORMATION
  Report Type: 
  Country: None (occurrence: None)
  Receive Date: 20090511
  Receipt Date: 20090506
  Transmission Date: 20091009
  Serious: Yes (Life-Threatening, Hospitalization)
  Sender: FDA-Public Use
  Company Number: 1000005739

PATIENT
  Age: 53 Year
  Sex: Male

DRUGS (4)
  1. ACAMPROSATE (ACAMPROSATE CALCIUM) (TABLETS) [Suspect]
     Dosage: 6 DOSAGE FORMS (6 DOSAGE FORMS, 1 IN 1 D), ORAL
     Route: 048
     Dates: end: 20080929
  2. SERESTA (50 MILLIGRAM, TABLETS) [Suspect]
     Dosage: ORAL
     Route: 048
     Dates: end: 20080929
  3. EQUANIL [Suspect]
     Dosage: ORAL
     Route: 048
     Dates: end: 20080929
  4. EFFEXOR [Concomitant]

REACTIONS (5)
  - ALCOHOL USE [None]
  - CARDIO-RESPIRATORY ARREST [None]
  - KORSAKOFF'S PSYCHOSIS ALCOHOLIC [None]
  - MULTIPLE DRUG OVERDOSE INTENTIONAL [None]
  - SUICIDAL IDEATION [None]
